FAERS Safety Report 7233375-9 (Version None)
Quarter: 2011Q1

REPORT INFORMATION
  Report Type: 
  Country: None (occurrence: None)
  Receive Date: 20110119
  Receipt Date: 20110114
  Transmission Date: 20110831
  Serious: Yes (Death, Life-Threatening, Hospitalization)
  Sender: FDA-Public Use
  Company Number: HR-BRISTOL-MYERS SQUIBB COMPANY-15478985

PATIENT
  Age: 74 Year
  Sex: Male
  Weight: 84 kg

DRUGS (10)
  1. TRENTAL [Concomitant]
  2. ISOPTIN [Concomitant]
  3. ZALDIAR [Concomitant]
  4. ATROVENT [Concomitant]
  5. TRAMADOL HCL [Concomitant]
  6. GEMCITABINE HCL [Suspect]
     Indication: NON-SMALL CELL LUNG CANCER
     Route: 065
     Dates: start: 20101230
  7. PANTOPRAZOLE [Concomitant]
  8. LOSARTAN POTASSIUM [Concomitant]
  9. CISPLATIN [Suspect]
     Indication: NON-SMALL CELL LUNG CANCER
     Route: 065
     Dates: start: 20101230
  10. NECITUMUMAB [Suspect]
     Indication: NON-SMALL CELL LUNG CANCER
     Route: 065
     Dates: start: 20101230

REACTIONS (1)
  - BRAIN OEDEMA [None]
